FAERS Safety Report 20631303 (Version 1)
Quarter: 2022Q1

REPORT INFORMATION
  Report Type: Spontaneous
  Country: FR (occurrence: FR)
  Receive Date: 20220324
  Receipt Date: 20220324
  Transmission Date: 20220423
  Serious: Yes (Hospitalization, Other)
  Sender: FDA-Public Use
  Company Number: None

PATIENT
  Age: 78 Year
  Sex: Male
  Weight: 75 kg

DRUGS (9)
  1. DARZALEX [Suspect]
     Active Substance: DARATUMUMAB
     Indication: Pain
     Route: 042
     Dates: start: 20191106, end: 20191128
  2. DARZALEX [Suspect]
     Active Substance: DARATUMUMAB
     Indication: Plasma cell myeloma
  3. DEXAMETHASONE [Suspect]
     Active Substance: DEXAMETHASONE
     Indication: Plasma cell myeloma
     Route: 042
     Dates: start: 20191106, end: 20191128
  4. REVLIMID [Suspect]
     Active Substance: LENALIDOMIDE
     Indication: Plasma cell myeloma
     Route: 048
     Dates: start: 20191106, end: 20191128
  5. ELIQUIS [Concomitant]
     Active Substance: APIXABAN
     Indication: Product used for unknown indication
     Dosage: 2,5 MG,
     Route: 048
     Dates: start: 20191106
  6. POLARAMINE [Concomitant]
     Active Substance: DEXCHLORPHENIRAMINE MALEATE
     Indication: Product used for unknown indication
     Route: 042
     Dates: start: 20191106, end: 20191128
  7. ACETAMINOPHEN [Concomitant]
     Active Substance: ACETAMINOPHEN
     Indication: Product used for unknown indication
     Route: 048
     Dates: start: 20191106
  8. PANTOPRAZOLE [Concomitant]
     Active Substance: PANTOPRAZOLE
     Indication: Product used for unknown indication
     Route: 048
  9. PENTACARINAT [Concomitant]
     Active Substance: PENTAMIDINE ISETHIONATE
     Indication: Pneumocystis jirovecii pneumonia

REACTIONS (2)
  - Partial seizures [Recovered/Resolved]
  - Infusion related reaction [Recovered/Resolved]

NARRATIVE: CASE EVENT DATE: 20191128
